FAERS Safety Report 7735740-X (Version None)
Quarter: 2011Q3

REPORT INFORMATION
  Report Type: 
  Country: None (occurrence: None)
  Receive Date: 20110908
  Receipt Date: 20110829
  Transmission Date: 20111222
  Serious: Yes (Hospitalization)
  Sender: FDA-Public Use
  Company Number: US-BIOGENIDEC-2011BI033665

PATIENT
  Age: 47 Year
  Sex: Female

DRUGS (1)
  1. TYSABRI [Suspect]
     Indication: MULTIPLE SCLEROSIS
     Route: 042
     Dates: start: 20090113, end: 20110721

REACTIONS (8)
  - URINARY TRACT INFECTION [None]
  - MULTIPLE SCLEROSIS [None]
  - HYPOAESTHESIA [None]
  - HEMIPARESIS [None]
  - DIPLOPIA [None]
  - DYSPNOEA [None]
  - COGNITIVE DISORDER [None]
  - DYSPHAGIA [None]
